FAERS Safety Report 10971709 (Version 6)
Quarter: 2016Q2

REPORT INFORMATION
  Report Type: Report from Study
  Country: BR (occurrence: BR)
  Receive Date: 20150331
  Receipt Date: 20160505
  Transmission Date: 20160815
  Serious: Yes (Hospitalization, Other)
  Sender: FDA-Public Use
  Company Number: PHHY2015BR036141

PATIENT
  Sex: Male
  Weight: 58 kg

DRUGS (3)
  1. SANDOSTATIN LAR DEPOT [Suspect]
     Active Substance: OCTREOTIDE ACETATE
     Indication: HEPATIC NEOPLASM
     Dosage: 30 MG, QMO
     Route: 030
  2. SANDOSTATIN LAR DEPOT [Suspect]
     Active Substance: OCTREOTIDE ACETATE
     Indication: COLON CANCER
  3. INTERFERON ALFA NOS [Suspect]
     Active Substance: INTERFERON ALFA-2A OR INTERFERON ALFA-2B
     Indication: LIVER DISORDER
     Dosage: UNK (MON, WED AND FRI)
     Route: 058

REACTIONS (10)
  - Atrioventricular block [Unknown]
  - Cardiomegaly [Unknown]
  - Weight decreased [Recovered/Resolved]
  - Eating disorder [Unknown]
  - Hepatic mass [Unknown]
  - Asthenia [Unknown]
  - Cardiac failure [Recovering/Resolving]
  - Memory impairment [Unknown]
  - Dyspnoea [Recovering/Resolving]
  - Hyperhidrosis [Unknown]

NARRATIVE: CASE EVENT DATE: 2013
